FAERS Safety Report 15767642 (Version 1)
Quarter: 2018Q4

REPORT INFORMATION
  Report Type: Spontaneous
  Country: JP (occurrence: JP)
  Receive Date: 20181227
  Receipt Date: 20181227
  Transmission Date: 20190205
  Serious: Yes (Death, Other)
  Sender: FDA-Public Use
  Company Number: JP-JNJFOC-20181232814

PATIENT

DRUGS (1)
  1. XARELTO [Suspect]
     Active Substance: RIVAROXABAN
     Indication: PRODUCT USED FOR UNKNOWN INDICATION
     Route: 048

REACTIONS (10)
  - Respiratory disorder [Unknown]
  - Adverse reaction [Unknown]
  - Cerebral haemorrhage [Unknown]
  - Cerebral infarction [Unknown]
  - Haemorrhagic diathesis [Unknown]
  - Haemorrhage [Unknown]
  - Anaemia [Unknown]
  - Haemorrhage [Fatal]
  - Wound haemorrhage [Unknown]
  - Epistaxis [Unknown]
